FAERS Safety Report 8235626-0 (Version None)
Quarter: 2012Q1

REPORT INFORMATION
  Report Type: 
  Country: None (occurrence: None)
  Receive Date: 20120323
  Receipt Date: 20120312
  Transmission Date: 20120608
  Serious: Yes (Life-Threatening)
  Sender: FDA-Public Use
  Company Number: MX-007810

PATIENT
  Age: 60 Year
  Sex: Male

DRUGS (1)
  1. DEGARELIX (DEGARELIX) [Suspect]
     Indication: PROSTATE CANCER
     Dates: start: 20110615

REACTIONS (2)
  - PROSTATE CANCER [None]
  - NEOPLASM PROGRESSION [None]
